FAERS Safety Report 5367735-8 (Version None)
Quarter: 2007Q2

REPORT INFORMATION
  Report Type: 
  Country: None (occurrence: None)
  Receive Date: 20070622
  Receipt Date: 20070307
  Transmission Date: 20071010
  Serious: No
  Sender: FDA-Public Use
  Company Number: US-ASTRAZENECA-2007UW04291

PATIENT
  Age: 14 Year
  Sex: Female
  Weight: 47.6 kg

DRUGS (6)
  1. PULMICORT [Suspect]
     Indication: ASTHMA
     Route: 055
  2. ZOLOFT [Concomitant]
  3. NEURONTIN [Concomitant]
  4. ACNE MEDS [Concomitant]
     Indication: ACNE
  5. ANTIBIOTIC FOR ACNE [Concomitant]
     Indication: ACNE
  6. ALBUTEROL [Concomitant]
     Indication: ASTHMA

REACTIONS (1)
  - DYSPNOEA [None]
